FAERS Safety Report 4516468-6 (Version None)
Quarter: 2004Q4

REPORT INFORMATION
  Report Type: 
  Country: None (occurrence: None)
  Receive Date: 20041202
  Receipt Date: 20041119
  Transmission Date: 20050328
  Serious: Yes (Other)
  Sender: FDA-Public Use
  Company Number: PHBS2004JP15644

PATIENT

DRUGS (1)
  1. RITALIN [Suspect]
     Dosage: 70 TO 80 TABLETS
     Route: 048
     Dates: start: 20041116, end: 20041116

REACTIONS (5)
  - ABDOMINAL PAIN [None]
  - CALCULUS URETERIC [None]
  - GASTROINTESTINAL DISORDER [None]
  - INTENTIONAL OVERDOSE [None]
  - SUICIDE ATTEMPT [None]
